FAERS Safety Report 4339347-6 (Version None)
Quarter: 2004Q2

REPORT INFORMATION
  Report Type: 
  Country: None (occurrence: None)
  Receive Date: 20040412
  Receipt Date: 20040329
  Transmission Date: 20050107
  Serious: Yes (Other)
  Sender: FDA-Public Use
  Company Number: 2004004084

PATIENT
  Sex: Male
  Weight: 110.6777 kg

DRUGS (17)
  1. DILANTIN [Suspect]
     Indication: CONVULSION
     Dosage: 500 (BID), ORAL
     Route: 048
     Dates: end: 20030728
  2. FILGRASTIM (FILGRASTIM) [Concomitant]
  3. HYDROCHLOROTHIAZIDE [Concomitant]
  4. DEXAMETHASONE [Concomitant]
  5. METHYLPHENIDATE HCL [Concomitant]
  6. WARFARIN SODIUM [Concomitant]
  7. HYDROCORTISONE [Concomitant]
  8. TAMOXIFEN (TAMOXIFEN) [Concomitant]
  9. ONDANSETRON HCL [Concomitant]
  10. PROCHLORPERAZINE EDISYLATE (PROCHLORPERAZINE EDISYLATE) [Concomitant]
  11. POTASSIUM CHLORIDE [Concomitant]
  12. RISPERIDONE [Concomitant]
  13. SERETIDE MITE (FLUTICASONE PROPIONATE, SALMETEROL XINAFOATE) [Concomitant]
  14. CARISOPRODOL [Concomitant]
  15. VICODIN [Concomitant]
  16. IRBESARTAN (IRBESARTAN) [Concomitant]
  17. RABEPRAZOLE SODIUM (RABEPRAZOLE SODIUM) [Concomitant]

REACTIONS (12)
  - ADRENAL CORTICAL INSUFFICIENCY [None]
  - ALANINE AMINOTRANSFERASE INCREASED [None]
  - ANAEMIA [None]
  - COGNITIVE DISORDER [None]
  - DEEP VEIN THROMBOSIS [None]
  - DIARRHOEA [None]
  - LEUKOPENIA [None]
  - LIVER FUNCTION TEST ABNORMAL [None]
  - NEUTROPENIA [None]
  - SKIN DISCOLOURATION [None]
  - THROMBOCYTOPENIA [None]
  - TREMOR [None]
